FAERS Safety Report 21690628 (Version 1)
Quarter: 2022Q4

REPORT INFORMATION
  Report Type: Spontaneous
  Country: US (occurrence: None)
  Receive Date: 20221206
  Receipt Date: 20221206
  Transmission Date: 20230113
  Serious: No
  Sender: FDA-Public Use
  Company Number: 2022A388634

PATIENT
  Sex: Male

DRUGS (1)
  1. FARXIGA [Suspect]
     Active Substance: DAPAGLIFLOZIN PROPANEDIOL
     Route: 048

REACTIONS (5)
  - Diabetes mellitus [Unknown]
  - Renal disorder [Unknown]
  - Visual impairment [Unknown]
  - Blood creatinine increased [Unknown]
  - Blood urea decreased [Unknown]
